FAERS Safety Report 18344770 (Version 1)
Quarter: 2020Q4

REPORT INFORMATION
  Report Type: Spontaneous
  Country: US (occurrence: US)
  Receive Date: 20201005
  Receipt Date: 20201005
  Transmission Date: 20210114
  Serious: Yes (Other)
  Sender: FDA-Public Use
  Company Number: US-MYLANLABS-2020M1084107

PATIENT
  Age: 18 Year
  Sex: Female

DRUGS (8)
  1. VORICONAZOLE. [Suspect]
     Active Substance: VORICONAZOLE
     Indication: KERATITIS
     Dosage: 6 TIMES DAILY WITHOUT TAPER
     Route: 061
  2. OFLOXACIN. [Concomitant]
     Active Substance: OFLOXACIN
     Indication: KERATITIS
     Route: 061
  3. AZITHROMYCIN ANHYDROUS. [Suspect]
     Active Substance: AZITHROMYCIN ANHYDROUS
     Indication: PSITTACOSIS
     Dosage: UNK, QD
     Route: 061
  4. VORICONAZOLE. [Suspect]
     Active Substance: VORICONAZOLE
     Indication: MICROSPORIDIA INFECTION
  5. ERYTHROMYCIN. [Suspect]
     Active Substance: ERYTHROMYCIN
     Indication: KERATITIS
     Route: 048
  6. LOTEPREDNOL [Concomitant]
     Active Substance: LOTEPREDNOL
     Indication: KERATITIS
     Route: 065
  7. DOXYCYCLINE. [Suspect]
     Active Substance: DOXYCYCLINE
     Indication: KERATITIS
     Route: 048
  8. AZITHROMYCIN ANHYDROUS. [Suspect]
     Active Substance: AZITHROMYCIN ANHYDROUS
     Indication: KERATITIS
     Dosage: 2 TIMES DAILY FOR 2 DAYS
     Route: 061

REACTIONS (3)
  - Off label use [Unknown]
  - Gastrointestinal disorder [Unknown]
  - Drug ineffective [Unknown]
